FAERS Safety Report 8783424 (Version 2)
Quarter: 2012Q4

REPORT INFORMATION
  Report Type: Report from Study
  Country: GB (occurrence: GB)
  Receive Date: 20120913
  Receipt Date: 20121003
  Transmission Date: 20130627
  Serious: Yes (Hospitalization)
  Sender: FDA-Public Use
  Company Number: GB-PFIZER INC-2012220893

PATIENT
  Age: 58 Year
  Sex: Female
  Weight: 83.5 kg

DRUGS (9)
  1. EPIRUBICIN HCL [Suspect]
     Indication: BREAST CANCER
     Dosage: 190 mg (90-120 mg/m2), every 3 weeks
     Route: 042
     Dates: start: 20120706
  2. CYCLOPHOSPHAMIDE [Suspect]
     Indication: BREAST CANCER
     Dosage: 1000 mg (500-600 mg/m2), every 3 weeks
     Route: 042
     Dates: start: 20120706
  3. BLINDED THERAPY [Suspect]
     Indication: BREAST CANCER
     Dosage: cycle 2, every 3 weeks
     Route: 042
     Dates: start: 20120817
  4. FLUOROURACIL [Suspect]
     Indication: BREAST CANCER
     Dosage: 950 mg (500-600 mg/m2), every 3 weeks
     Route: 042
     Dates: start: 20120706
  5. DOCETAXEL [Suspect]
     Indication: BREAST CANCER
     Dosage: 200 mg (100 mg/m2), every 3 weeks
     Route: 042
     Dates: start: 20120817
  6. TRASTUZUMAB [Concomitant]
     Indication: BREAST CANCER
     Dosage: 694 mg (8 mg/kg), every 3 weeks
     Route: 042
     Dates: start: 20120817
  7. APREPITANT [Concomitant]
     Dosage: 80 mg, UNK
     Dates: start: 20120707, end: 20120709
  8. FILGRASTIM [Concomitant]
     Dosage: 480 ug, UNK
     Dates: start: 20120706, end: 20120712
  9. PARACETAMOL [Concomitant]

REACTIONS (4)
  - Catheter site pain [Recovered/Resolved]
  - Catheter site infection [Recovered/Resolved]
  - Febrile neutropenia [Recovered/Resolved]
  - Febrile neutropenia [Recovered/Resolved]
